FAERS Safety Report 5528043-5 (Version None)
Quarter: 2007Q4

REPORT INFORMATION
  Report Type: 
  Country: None (occurrence: None)
  Receive Date: 20071121
  Receipt Date: 20071119
  Transmission Date: 20080405
  Serious: Yes (Other)
  Sender: FDA-Public Use
  Company Number: THQ2007A01095

PATIENT
  Age: 76 Year
  Sex: Male

DRUGS (3)
  1. LEUPROLIDE ACETATE [Suspect]
     Indication: PROSTATE CANCER
     Dosage: 22.5 MG (22.5 MG, 1 IN 1 3 M) INJECTION
     Dates: start: 20050324, end: 20060710
  2. ATORVASTATIN CALCIUM [Concomitant]
  3. METFORMIN HYDROCHLORIDE [Concomitant]

REACTIONS (1)
  - CORONARY ARTERY OCCLUSION [None]
